FAERS Safety Report 24083201 (Version 2)
Quarter: 2024Q3

REPORT INFORMATION
  Report Type: Spontaneous
  Country: TH (occurrence: TH)
  Receive Date: 20240712
  Receipt Date: 20240829
  Transmission Date: 20241016
  Serious: Yes (Hospitalization)
  Sender: ASTELLAS
  Company Number: TH-ASTELLAS-2024US012211

PATIENT
  Sex: Female
  Weight: 50 kg

DRUGS (1)
  1. PADCEV [Suspect]
     Active Substance: ENFORTUMAB VEDOTIN-EJFV
     Indication: Transitional cell carcinoma metastatic
     Dosage: ON DAY1, DAY8, DAY15 EVERY 28 DAYS CYCLE
     Route: 042

REACTIONS (3)
  - Feeding disorder [Unknown]
  - Diarrhoea [Recovering/Resolving]
  - Performance status decreased [Unknown]
